FAERS Safety Report 20060076 (Version 1)
Quarter: 2021Q4

REPORT INFORMATION
  Report Type: Spontaneous
  Country: CN (occurrence: CN)
  Receive Date: 20211111
  Receipt Date: 20211111
  Transmission Date: 20220303
  Serious: Yes (Other)
  Sender: FDA-Public Use
  Company Number: CN-BAXTER-2021BAX034955

PATIENT
  Age: 54 Year
  Sex: Female
  Weight: 58 kg

DRUGS (4)
  1. CYCLOPHOSPHAMIDE [Suspect]
     Active Substance: CYCLOPHOSPHAMIDE
     Indication: Breast cancer in situ
     Dosage: FIRST CYCLE OF AC-T REGIMEN
     Route: 041
     Dates: start: 20211012, end: 20211012
  2. CYCLOPHOSPHAMIDE [Suspect]
     Active Substance: CYCLOPHOSPHAMIDE
     Dosage: SECOND CYCLE, CYCLOPHOSPHAMIDE 1 G + 0.9% SALINE 250 ML
     Route: 041
     Dates: start: 20211012, end: 20211012
  3. SODIUM CHLORIDE [Suspect]
     Active Substance: SODIUM CHLORIDE
     Indication: Medication dilution
     Dosage: SECOND CYCLE, CYCLOPHOSPHAMIDE 1 G + 0.9% SALINE 250 ML
     Route: 041
     Dates: start: 20211012, end: 20211012
  4. PIRARUBICIN [Suspect]
     Active Substance: PIRARUBICIN
     Indication: Breast cancer in situ
     Dosage: FIRST CYCLE OF AC-T REGIMEN
     Route: 065
     Dates: start: 20211012, end: 20211012

REACTIONS (3)
  - Cold sweat [Recovering/Resolving]
  - Dyspnoea [Unknown]
  - Chills [Recovering/Resolving]

NARRATIVE: CASE EVENT DATE: 20211012
